FAERS Safety Report 24667032 (Version 2)
Quarter: 2024Q4

REPORT INFORMATION
  Report Type: Spontaneous
  Country: US (occurrence: US)
  Receive Date: 20241126
  Receipt Date: 20241202
  Transmission Date: 20250115
  Serious: No
  Sender: PFIZER
  Company Number: US-PFIZER INC-PV202400152554

PATIENT
  Age: 81 Year
  Sex: Female
  Weight: 66.6 kg

DRUGS (1)
  1. IBRANCE [Suspect]
     Active Substance: PALBOCICLIB
     Indication: Breast cancer female
     Dosage: TAKE 1 CAP DAILY FOR 21 DAYS, THEN 7 DAYS OFF, TAKE WITH FOOD
     Route: 048

REACTIONS (2)
  - Pruritus [Unknown]
  - Rash [Unknown]
